FAERS Safety Report 24445080 (Version 2)
Quarter: 2025Q4

REPORT INFORMATION
  Report Type: Spontaneous
  Country: CA (occurrence: CA)
  Receive Date: 20241016
  Receipt Date: 20251029
  Transmission Date: 20260118
  Serious: Yes (Other)
  Sender: ROCHE
  Company Number: CA-ROCHE-10000099223

PATIENT
  Age: 81 Year
  Sex: Male

DRUGS (10)
  1. RITUXIMAB [Suspect]
     Active Substance: RITUXIMAB
     Indication: Mucous membrane pemphigoid
     Route: 042
  2. RITUXIMAB [Suspect]
     Active Substance: RITUXIMAB
     Route: 042
  3. RITUXIMAB [Suspect]
     Active Substance: RITUXIMAB
     Route: 042
  4. ACETAMINOPHEN [Concomitant]
     Active Substance: ACETAMINOPHEN
     Route: 048
  5. ATORVASTATIN [Concomitant]
     Active Substance: ATORVASTATIN
     Route: 065
  6. DIPHENHYDRAMINE [Concomitant]
     Active Substance: DIPHENHYDRAMINE
     Route: 048
  7. GABAPENTIN [Concomitant]
     Active Substance: GABAPENTIN
  8. METHYLPREDNISOLONE [Concomitant]
     Active Substance: METHYLPREDNISOLONE
     Route: 042
  9. SOTALOL [Concomitant]
     Active Substance: SOTALOL
     Route: 065
  10. VALACYCLOVIR HYDROCHLORIDE [Concomitant]
     Active Substance: VALACYCLOVIR HYDROCHLORIDE

REACTIONS (16)
  - Blood pressure decreased [Recovered/Resolved]
  - Choking [Recovered/Resolved]
  - Drug ineffective [Unknown]
  - Dysphagia [Recovered/Resolved]
  - General physical health deterioration [Recovered/Resolved]
  - Hypertension [Recovered/Resolved]
  - Ocular discomfort [Recovered/Resolved]
  - Ocular pemphigoid [Recovered/Resolved]
  - Off label use [Unknown]
  - Oral discomfort [Recovered/Resolved]
  - Oropharyngeal discomfort [Recovered/Resolved]
  - Oropharyngeal pain [Recovered/Resolved]
  - Renal cancer [Recovered/Resolved]
  - Skin lesion [Recovered/Resolved]
  - Throat tightness [Recovered/Resolved]
  - Infection [Recovered/Resolved]
